FAERS Safety Report 6604201-3 (Version None)
Quarter: 2010Q1

REPORT INFORMATION
  Report Type: 
  Country: None (occurrence: None)
  Receive Date: 20100226
  Receipt Date: 20090701
  Transmission Date: 20100710
  Serious: No
  Sender: FDA-Public Use
  Company Number: A0795014A

PATIENT
  Sex: Male

DRUGS (2)
  1. LAMICTAL CD [Suspect]
     Indication: BIPOLAR DISORDER
     Dosage: 200MG PER DAY
     Route: 048
     Dates: start: 20090610
  2. LAMOTRIGINE [Suspect]
     Dosage: 200MG PER DAY
     Route: 065
     Dates: start: 20080101

REACTIONS (3)
  - DERMATITIS [None]
  - DRUG INEFFECTIVE [None]
  - PRURITUS [None]
